FAERS Safety Report 8431917 (Version 5)
Quarter: 2012Q4

REPORT INFORMATION
  Report Type: Report from Study
  Country: JP (occurrence: JP)
  Receive Date: 20120229
  Receipt Date: 20121128
  Transmission Date: 20130627
  Serious: Yes (Hospitalization, Other)
  Sender: FDA-Public Use
  Company Number: JP-JNJFOC-20120211669

PATIENT
  Sex: Male
  Weight: 61 kg

DRUGS (15)
  1. STELARA [Suspect]
     Indication: PSORIASIS
     Route: 058
     Dates: start: 20110920
  2. STELARA [Suspect]
     Indication: PSORIASIS
     Route: 058
     Dates: start: 20111213
  3. STELARA [Suspect]
     Indication: PSORIASIS
     Route: 058
     Dates: start: 20110823
  4. STELARA [Suspect]
     Indication: PSORIASIS
     Route: 058
     Dates: start: 20120220
  5. STELARA [Suspect]
     Indication: PSORIASIS
     Route: 058
     Dates: start: 20111213
  6. NEORAL [Suspect]
     Indication: PSORIASIS
     Route: 048
     Dates: start: 20080908, end: 20110729
  7. ALMETA [Concomitant]
     Indication: PSORIASIS
     Route: 061
  8. DERMOVATE [Concomitant]
     Indication: PSORIASIS
     Route: 061
  9. DERMOVATE [Concomitant]
     Indication: PSORIASIS
     Route: 061
     Dates: start: 20120307
  10. OXAROL [Concomitant]
     Indication: PSORIASIS
     Route: 061
  11. HEPARINOID [Concomitant]
     Indication: PSORIASIS
     Route: 061
     Dates: start: 20110920, end: 20120307
  12. ISCOTIN [Concomitant]
     Indication: PROPHYLAXIS
     Route: 048
     Dates: end: 20120307
  13. PYDOXAL [Concomitant]
     Indication: PROPHYLAXIS
     Route: 048
     Dates: end: 20120307
  14. ANTEBATE [Concomitant]
     Indication: PSORIASIS
     Dates: end: 20120307
  15. GASTER [Concomitant]
     Route: 048
     Dates: end: 20120307

REACTIONS (1)
  - Tonsil cancer [Recovering/Resolving]
